FAERS Safety Report 9468793 (Version 1)
Quarter: 2013Q3

REPORT INFORMATION
  Report Type: Spontaneous
  Country: GB (occurrence: None)
  Receive Date: 20130816
  Receipt Date: 20130816
  Transmission Date: 20140515
  Serious: Yes (Disabling)
  Sender: FDA-Public Use
  Company Number: 2013AP007233

PATIENT
  Age: 40 Year
  Sex: Female

DRUGS (2)
  1. PAROXETINE (PAROXETINE) [Suspect]
     Indication: DEPRESSION
  2. SERTRALINE (SERTRALINE) [Concomitant]

REACTIONS (12)
  - Alcoholism [None]
  - Abnormal behaviour [None]
  - Legal problem [None]
  - Alcohol poisoning [None]
  - Disinhibition [None]
  - Psychomotor hyperactivity [None]
  - Indifference [None]
  - Logorrhoea [None]
  - Memory impairment [None]
  - Disturbance in attention [None]
  - Loss of employment [None]
  - Antisocial behaviour [None]
